FAERS Safety Report 4940138-3 (Version None)
Quarter: 2006Q1

REPORT INFORMATION
  Report Type: 
  Country: None (occurrence: None)
  Receive Date: 20060310
  Receipt Date: 20050331
  Transmission Date: 20060701
  Serious: Yes (Hospitalization)
  Sender: FDA-Public Use
  Company Number: DE-ROCHE-400242

PATIENT
  Age: 73 Year
  Sex: Female

DRUGS (4)
  1. INTERFERON ALFA-2A [Suspect]
     Indication: METASTATIC MALIGNANT MELANOMA
     Dosage: GIVEN ON DAYS 11 AND 18 OF EACH 28-DAY CYCLE.
     Route: 058
     Dates: start: 20050201
  2. DACARBAZINE [Suspect]
     Indication: METASTATIC MALIGNANT MELANOMA
     Dosage: GIVEN ON DAY 1 OF EACH 28-DAY CYCLE.
     Route: 042
     Dates: start: 20050201, end: 20050330
  3. DACARBAZINE [Suspect]
     Route: 042
     Dates: start: 20050407
  4. THYMOSIN ALPHA 1 [Suspect]
     Indication: METASTATIC MALIGNANT MELANOMA
     Dosage: ON DAYS 8-11 AND 15-18 IN A [28-DAY] CYCLE.
     Route: 058
     Dates: start: 20050201

REACTIONS (4)
  - ANAEMIA [None]
  - DEEP VEIN THROMBOSIS [None]
  - PULMONARY EMBOLISM [None]
  - URINARY TRACT INFECTION [None]
